FAERS Safety Report 18123385 (Version 2)
Quarter: 2020Q3

REPORT INFORMATION
  Report Type: Report from Study
  Country: US (occurrence: US)
  Receive Date: 20200807
  Receipt Date: 20200813
  Transmission Date: 20201103
  Serious: Yes (Hospitalization)
  Sender: FDA-Public Use
  Company Number: US-PFIZER INC-2020301242

PATIENT
  Age: 76 Year
  Sex: Male
  Weight: 69 kg

DRUGS (6)
  1. FLUOROURACIL. [Suspect]
     Active Substance: FLUOROURACIL
     Indication: GASTROOESOPHAGEAL CANCER
     Dosage: CYCLIC(ONCE EVERY 2 WEEKS)
     Route: 042
     Dates: start: 20191028, end: 20200224
  2. OXALIPLATIN. [Suspect]
     Active Substance: OXALIPLATIN
     Indication: GASTROOESOPHAGEAL CANCER
     Dosage: CYCLIC(ONCE EVERY 2 WEEKS)
     Route: 042
     Dates: start: 20191028, end: 20200224
  3. AVELUMAB [Suspect]
     Active Substance: AVELUMAB
     Indication: GASTROOESOPHAGEAL CANCER
     Dosage: 800 MG, CYCLIC(ONCE EVERY 2 WEEKS)
     Route: 042
     Dates: start: 20191028
  4. AVELUMAB [Suspect]
     Active Substance: AVELUMAB
     Dosage: 800 MG, CYCLIC(ONCE EVERY 2 WEEKS)
     Route: 042
     Dates: start: 20200713, end: 20200713
  5. FOLINIC ACID [Suspect]
     Active Substance: LEUCOVORIN
     Indication: GASTROOESOPHAGEAL CANCER
     Dosage: UNK UNK, CYCLIC(ONCE EVERY 2 WEEKS)
     Route: 042
     Dates: start: 20191028, end: 20200224
  6. TRASTUZUMAB. [Suspect]
     Active Substance: TRASTUZUMAB
     Indication: GASTROOESOPHAGEAL CANCER
     Dosage: 4 MG/KG, CYCLIC (ONCE EVERY 2 WEEKS)
     Route: 042
     Dates: start: 20191028, end: 20200713

REACTIONS (1)
  - Sepsis [Recovered/Resolved]

NARRATIVE: CASE EVENT DATE: 20200728
